FAERS Safety Report 4518234-4 (Version None)
Quarter: 2004Q4

REPORT INFORMATION
  Report Type: 
  Country: None (occurrence: None)
  Receive Date: 20041201
  Receipt Date: 20041124
  Transmission Date: 20050328
  Serious: Yes (Hospitalization)
  Sender: FDA-Public Use
  Company Number: DL2004280

PATIENT
  Age: 22 Year
  Sex: Female

DRUGS (2)
  1. MIFEPRISTONE TABLETS, 200 MG (DANCO LABS) [Suspect]
     Indication: ABORTION INDUCED
     Dosage: 200 MG, ORAL
     Route: 048
     Dates: start: 20041008
  2. MISOPROSTOL [Suspect]
     Dosage: 800 MCG, VAGINAL
     Route: 067
     Dates: start: 20041010

REACTIONS (17)
  - ABDOMINAL PAIN [None]
  - ABORTION COMPLETE [None]
  - ASTHENIA [None]
  - BLOOD HUMAN CHORIONIC GONADOTROPIN INCREASED [None]
  - DIARRHOEA [None]
  - DIZZINESS [None]
  - HAEMOGLOBIN DECREASED [None]
  - HAEMORRHAGE [None]
  - HYPERHIDROSIS [None]
  - HYPOTENSION [None]
  - NAUSEA [None]
  - PALLOR [None]
  - TACHYCARDIA [None]
  - TACHYPNOEA [None]
  - UTERINE TENDERNESS [None]
  - VOMITING [None]
  - WHITE BLOOD CELL COUNT INCREASED [None]
